FAERS Safety Report 25070261 (Version 1)
Quarter: 2025Q1

REPORT INFORMATION
  Report Type: Spontaneous
  Country: US (occurrence: US)
  Receive Date: 20250312
  Receipt Date: 20250312
  Transmission Date: 20250409
  Serious: No
  Sender: DR REDDYS
  Company Number: US-DRL-USA-USA/2025/02/002993

PATIENT
  Age: 74 Year
  Sex: Female
  Weight: 54 kg

DRUGS (1)
  1. DIFLUPREDNATE [Suspect]
     Active Substance: DIFLUPREDNATE
     Indication: Intraocular pressure test abnormal
     Route: 047
     Dates: start: 20250121

REACTIONS (3)
  - Abdominal discomfort [Unknown]
  - Decreased appetite [Unknown]
  - Productive cough [Unknown]
